FAERS Safety Report 6264266-8 (Version None)
Quarter: 2009Q3

REPORT INFORMATION
  Report Type: 
  Country: None (occurrence: None)
  Receive Date: 20090710
  Receipt Date: 20090702
  Transmission Date: 20100115
  Serious: Yes (Hospitalization)
  Sender: FDA-Public Use
  Company Number: AT-ASTRAZENECA-2004PK00865

PATIENT
  Age: 39 Year
  Sex: Female

DRUGS (3)
  1. NOLVADEX [Suspect]
     Indication: BREAST CANCER
     Route: 048
     Dates: start: 20031014
  2. ZOLADEX [Suspect]
     Indication: BREAST CANCER
     Route: 058
  3. ZOLEDRONIC ACID [Suspect]
     Indication: BREAST CANCER
     Dates: start: 20031014

REACTIONS (1)
  - ENDOMETRIAL DISORDER [None]
